FAERS Safety Report 4892564-9 (Version None)
Quarter: 2006Q1

REPORT INFORMATION
  Report Type: 
  Country: None (occurrence: None)
  Receive Date: 20060124
  Receipt Date: 20060110
  Transmission Date: 20060701
  Serious: Yes (Hospitalization)
  Sender: FDA-Public Use
  Company Number: 2006RR-01457

PATIENT
  Age: 18 Year
  Sex: Male

DRUGS (1)
  1. IBUPROFEN [Suspect]
     Dosage: ORAL
     Route: 048
     Dates: start: 20051001, end: 20051001

REACTIONS (3)
  - DIARRHOEA [None]
  - HAEMOLYTIC URAEMIC SYNDROME [None]
  - RENAL FAILURE [None]
